FAERS Safety Report 10655777 (Version 1)
Quarter: 2014Q4

REPORT INFORMATION
  Report Type: Report from Study
  Country: IT (occurrence: IT)
  Receive Date: 20141216
  Receipt Date: 20141216
  Transmission Date: 20150529
  Serious: Yes (Other)
  Sender: FDA-Public Use
  Company Number: IT-BAYER-2014-184132

PATIENT
  Age: 37 Year
  Sex: Female

DRUGS (1)
  1. KETOPROFEN (SYSTEMIC FORMULATION) [Suspect]
     Active Substance: KETOPROFEN
     Indication: PAIN
     Route: 048

REACTIONS (1)
  - Bronchospasm [None]
